FAERS Safety Report 22330898 (Version 1)
Quarter: 2023Q2

REPORT INFORMATION
  Report Type: Report from Study
  Country: US (occurrence: None)
  Receive Date: 20230517
  Receipt Date: 20230517
  Transmission Date: 20230722
  Serious: Yes (Other)
  Sender: FDA-Public Use
  Company Number: US-ROCHE-3349158

PATIENT

DRUGS (7)
  1. RITUXIMAB [Suspect]
     Active Substance: RITUXIMAB
     Indication: Burkitt^s lymphoma
     Dosage: SUBSEQUENT DOSES OF RITUXIMAB WAS RECEIVED ON 21/SEP/2012 12/OCT/2012, 02/NOV/2012, 23/NOV/2012, 14/
     Route: 041
     Dates: start: 20120921
  2. ETOPOSIDE [Suspect]
     Active Substance: ETOPOSIDE
     Indication: Burkitt^s lymphoma
     Dosage: SUBSEQUENT DOSES OF ETOPOSIDE RECEIVED ON  12/OCT/2012 (50 MG/M2) 02/NOV/2012 (60 MG/M2), 23/NOV/201
     Route: 065
     Dates: start: 20120922
  3. DOXORUBICIN [Suspect]
     Active Substance: DOXORUBICIN
     Indication: Burkitt^s lymphoma
     Dosage: SUBSEQUENT DOSES OF DOXORUBICIN RECEIVED ON 12/OCT/2012 (10 MG/M2), 05/NOV/2012  (12 MG/M2),
     Route: 065
     Dates: start: 20120922
  4. VINCRISTINE [Suspect]
     Active Substance: VINCRISTINE
     Indication: Burkitt^s lymphoma
     Dosage: SUBSEQUENT DOSE OF VINCRISTINE WAS RECEIVED ON  12/OCT/2012, 02/NOV/2012, 23/NOV/2012, 23/NOV/2012,
     Route: 065
     Dates: start: 20120925
  5. PREDNISONE [Suspect]
     Active Substance: PREDNISONE
     Indication: Burkitt^s lymphoma
     Dosage: SUBSEQUENT DOSE OF PREDNISONE RECEIVED ON 12/OCT/2012, 02/NOV/2012, 23/NOV/2012, 18/DEC/2012, 04/JAN
     Route: 065
     Dates: start: 20120921
  6. FILGRASTIM [Suspect]
     Active Substance: FILGRASTIM
     Indication: Burkitt^s lymphoma
     Dosage: SUBSEQUENT DOSE OF FILGRASTIM WAS RECEIVED ON 17/OCT/2012, 022/NOV/2012, 28/NOV/2012, 19/DEC/2012, 0
     Route: 065
     Dates: start: 20120927
  7. METHOTREXATE [Suspect]
     Active Substance: METHOTREXATE
     Indication: Burkitt^s lymphoma
     Dosage: SUBSEQUENT DOSES OF METHOTREXATE RECEIVED ON 06/NOV/2012, 27/NOV/2012, 23/NOV/2012, 18/DEC/2012, 14/
     Route: 065
     Dates: start: 20121102

REACTIONS (5)
  - Gastric perforation [Recovered/Resolved]
  - Neutrophil count decreased [Recovered/Resolved]
  - Lymphocyte count decreased [Recovered/Resolved]
  - White blood cell count decreased [Recovered/Resolved]
  - Febrile neutropenia [Recovered/Resolved]

NARRATIVE: CASE EVENT DATE: 20121112
